FAERS Safety Report 4688533-4 (Version None)
Quarter: 2005Q2

REPORT INFORMATION
  Report Type: 
  Country: None (occurrence: None)
  Receive Date: 20050311
  Receipt Date: 20050311
  Transmission Date: 20051028
  Serious: No
  Sender: FDA-Public Use
  Company Number: None

PATIENT
  Sex: Female
  Weight: 90.2658 kg

DRUGS (4)
  1. GABAPENTIN [Suspect]
     Indication: BRONCHITIS CHRONIC
     Dosage: 400MG PO TID
  2. GABAPENTIN [Suspect]
     Indication: CHRONIC OBSTRUCTIVE PULMONARY DISEASE
     Dosage: 400MG PO TID
  3. GABAPENTIN [Suspect]
     Indication: DIABETES MELLITUS
     Dosage: 400MG PO TID
  4. GABAPENTIN [Suspect]
     Indication: PAIN
     Dosage: 400MG PO TID

REACTIONS (2)
  - DIZZINESS [None]
  - PHARMACEUTICAL PRODUCT COMPLAINT [None]
